FAERS Safety Report 16109049 (Version 1)
Quarter: 2019Q1

REPORT INFORMATION
  Report Type: Spontaneous
  Country: US (occurrence: US)
  Receive Date: 20190323
  Receipt Date: 20190323
  Transmission Date: 20190418
  Serious: No
  Sender: FDA-Public Use
  Company Number: US-THERAPEUTICSMD-2019TMD00060

PATIENT
  Age: 54 Year
  Sex: Female
  Weight: 56.69 kg

DRUGS (4)
  1. IMVEXXY [Suspect]
     Active Substance: ESTRADIOL
     Indication: ATROPHIC VULVOVAGINITIS
     Dosage: 10 ?G, ONCE ON A SATURDAY MORNING, RIGHT BEFORE GOING TO THE GYM
     Route: 067
     Dates: start: 201812, end: 201812
  2. IMVEXXY [Suspect]
     Active Substance: ESTRADIOL
     Indication: VULVOVAGINAL DRYNESS
     Dosage: 10 ?G, ONCE
     Route: 067
     Dates: start: 201811, end: 201811
  3. IMVEXXY [Suspect]
     Active Substance: ESTRADIOL
     Indication: DYSPAREUNIA
     Dosage: 10 ?G, ONCE ON A SATURDAY MORNING, RIGHT BEFORE GOING TO THE GYM
     Route: 067
     Dates: start: 201901, end: 201901
  4. HORMONE REPLACEMENT [Concomitant]

REACTIONS (5)
  - Vulvovaginal pain [Recovered/Resolved]
  - Vulvovaginal pruritus [Recovered/Resolved]
  - Vaginal lesion [Recovered/Resolved]
  - Vulvovaginal mycotic infection [Recovered/Resolved]
  - Vulvovaginal discomfort [Recovered/Resolved]

NARRATIVE: CASE EVENT DATE: 201812
